FAERS Safety Report 10152522 (Version 2)
Quarter: 2014Q2

REPORT INFORMATION
  Report Type: Report from Study
  Country: MX (occurrence: MX)
  Receive Date: 20140505
  Receipt Date: 20140505
  Transmission Date: 20141212
  Serious: Yes (Other)
  Sender: FDA-Public Use
  Company Number: PHHY2009MX39086

PATIENT
  Age: 66 Year
  Sex: Female

DRUGS (2)
  1. LAMISIL [Suspect]
     Indication: ONYCHOMYCOSIS
     Dosage: 250 MG, QD
     Route: 048
     Dates: start: 200905, end: 201005
  2. CAPTOPRIL [Concomitant]
     Indication: HYPERTENSION
     Dosage: UNK UKN, QD
     Dates: start: 200005

REACTIONS (10)
  - Upper limb fracture [Unknown]
  - Joint range of motion decreased [Unknown]
  - Hand fracture [Unknown]
  - Onychalgia [Unknown]
  - Nail disorder [Unknown]
  - Gastrointestinal disorder [Unknown]
  - Urinary incontinence [Unknown]
  - Limb discomfort [Unknown]
  - Gastritis [Unknown]
  - Abdominal discomfort [Unknown]
